FAERS Safety Report 8340805-8 (Version None)
Quarter: 2012Q2

REPORT INFORMATION
  Report Type: 
  Country: None (occurrence: None)
  Receive Date: 20120507
  Receipt Date: 20120426
  Transmission Date: 20120825
  Serious: Yes (Other)
  Sender: FDA-Public Use
  Company Number: DE-ROCHE-1064238

PATIENT
  Sex: Male

DRUGS (1)
  1. BEVACIZUMAB [Suspect]
     Indication: PRODUCT USED FOR UNKNOWN INDICATION

REACTIONS (5)
  - DISSEMINATED INTRAVASCULAR COAGULATION [None]
  - CHEST PAIN [None]
  - HAEMOLYSIS [None]
  - BACK PAIN [None]
  - LIVER FUNCTION TEST ABNORMAL [None]
